FAERS Safety Report 12843035 (Version 2)
Quarter: 2016Q4

REPORT INFORMATION
  Report Type: Report from Study
  Country: DO (occurrence: DO)
  Receive Date: 20161013
  Receipt Date: 20161024
  Transmission Date: 20170207
  Serious: Yes (Disabling)
  Sender: FDA-Public Use
  Company Number: PHHY2016DO140493

PATIENT
  Age: 53 Year
  Sex: Male

DRUGS (2)
  1. LANTUS [Concomitant]
     Active Substance: INSULIN GLARGINE
     Indication: DIABETES MELLITUS
     Dosage: 30 U, EVERY MORNING
     Route: 065
  2. EXFORGE [Suspect]
     Active Substance: AMLODIPINE BESYLATE\VALSARTAN
     Indication: HYPERTENSION
     Dosage: (AMLODIPINE 10/VALSARTAN 160, UNITS NOT PROVIDED) (FOR 15 YEARS NOW)
     Route: 065

REACTIONS (5)
  - Communication disorder [Unknown]
  - Mobility decreased [Unknown]
  - Asthenia [Unknown]
  - Spinal fracture [Unknown]
  - Accident [Unknown]
